FAERS Safety Report 4533775-1 (Version None)
Quarter: 2004Q4

REPORT INFORMATION
  Report Type: 
  Country: None (occurrence: None)
  Receive Date: 20041206
  Receipt Date: 20041018
  Transmission Date: 20050328
  Serious: No
  Sender: FDA-Public Use
  Company Number: USA041081592

PATIENT
  Sex: Female

DRUGS (4)
  1. CYMBALTA [Suspect]
     Indication: DEPRESSION
     Dosage: 60 MG/ 1 IN THE EVENING
     Route: 048
     Dates: start: 20040901
  2. NEURONTIN          (GABAPENTIN PFIZER) [Concomitant]
  3. TRAZADONE        (TRAZODONE) [Concomitant]
  4. IRON [Concomitant]

REACTIONS (2)
  - INSOMNIA [None]
  - NIGHTMARE [None]
